FAERS Safety Report 24274164 (Version 1)
Quarter: 2024Q3

REPORT INFORMATION
  Report Type: Report from Study
  Country: US (occurrence: US)
  Receive Date: 20240902
  Receipt Date: 20240902
  Transmission Date: 20241017
  Serious: Yes (Other)
  Sender: TEVA
  Company Number: US-TEVA-VS-3237754

PATIENT
  Age: 77 Year
  Sex: Female

DRUGS (1)
  1. AUSTEDO XR [Suspect]
     Active Substance: DEUTETRABENAZINE
     Indication: Tardive dyskinesia
     Route: 048
     Dates: start: 20240806

REACTIONS (6)
  - Tardive dyskinesia [Not Recovered/Not Resolved]
  - Incorrect dose administered [Unknown]
  - Memory impairment [Not Recovered/Not Resolved]
  - Loss of personal independence in daily activities [Not Recovered/Not Resolved]
  - Diabetes mellitus [Not Recovered/Not Resolved]
  - Bruxism [Not Recovered/Not Resolved]

NARRATIVE: CASE EVENT DATE: 20240801
